FAERS Safety Report 13996707 (Version 1)
Quarter: 2017Q3

REPORT INFORMATION
  Report Type: Spontaneous
  Country: US (occurrence: US)
  Receive Date: 20170921
  Receipt Date: 20170921
  Transmission Date: 20171128
  Serious: Yes (Other)
  Sender: FDA-Public Use
  Company Number: US-ALLERGAN-1733512US

PATIENT
  Sex: Female

DRUGS (3)
  1. VIBERZI [Suspect]
     Active Substance: ELUXADOLINE
     Indication: IRRITABLE BOWEL SYNDROME
     Dosage: 75 MG, BID
     Route: 048
     Dates: start: 20170220, end: 20170221
  2. CLONAZEPAM. [Concomitant]
     Active Substance: CLONAZEPAM
  3. FLUVOXAMINE [Concomitant]
     Active Substance: FLUVOXAMINE

REACTIONS (2)
  - Contraindicated drug prescribed [Unknown]
  - Pancreatitis [Unknown]

NARRATIVE: CASE EVENT DATE: 20170220
